FAERS Safety Report 8168888-9 (Version None)
Quarter: 2012Q1

REPORT INFORMATION
  Report Type: 
  Country: None (occurrence: None)
  Receive Date: 20120227
  Receipt Date: 20120224
  Transmission Date: 20120608
  Serious: Yes (Hospitalization)
  Sender: FDA-Public Use
  Company Number: JP-ABBOTT-12P-087-0892723-00

PATIENT
  Sex: Male
  Weight: 61 kg

DRUGS (10)
  1. HUMIRA [Suspect]
     Indication: CROHN'S DISEASE
     Route: 058
     Dates: start: 20110112, end: 20110112
  2. MONOAMMONIUM GLYCYRRHIZINATE GLYCINE L-CYSTEINE COMBINED DRUG [Concomitant]
     Indication: HEPATITIS C
     Dosage: 60 ML ONCE OR TWICE A WEEK
  3. OMEPRAZOLE [Concomitant]
     Indication: GASTRITIS EROSIVE
     Route: 048
  4. HUMIRA [Suspect]
     Dates: start: 20110126, end: 20110126
  5. HUMIRA [Suspect]
     Dates: start: 20110218, end: 20110428
  6. MESALAMINE [Concomitant]
     Indication: CROHN'S DISEASE
     Dosage: 3000 MG DAILY
     Route: 048
  7. PREDNISOLONE [Concomitant]
     Route: 048
     Dates: end: 20110208
  8. PREDNISOLONE [Concomitant]
     Indication: POSTOPERATIVE ABSCESS
     Dosage: 1 MG DAILY
     Route: 048
     Dates: start: 20110318
  9. TPN [Concomitant]
     Indication: CROHN'S DISEASE
     Dosage: 1200 ML DAILY
     Route: 045
  10. ALENDRONATE SODIUM [Concomitant]
     Indication: OSTEOPOROSIS
     Route: 048

REACTIONS (5)
  - MALAISE [None]
  - ABDOMINAL WALL ABSCESS [None]
  - POSTOPERATIVE ABSCESS [None]
  - PYREXIA [None]
  - PROCEDURAL PAIN [None]
